FAERS Safety Report 19831543 (Version 1)
Quarter: 2021Q3

REPORT INFORMATION
  Report Type: Spontaneous
  Country: US (occurrence: US)
  Receive Date: 20210913
  Receipt Date: 20210913
  Transmission Date: 20211014
  Serious: Yes (Other)
  Sender: FDA-Public Use
  Company Number: None

PATIENT
  Age: 64 Year
  Sex: Male

DRUGS (1)
  1. REBIF [Suspect]
     Active Substance: INTERFERON BETA-1A
     Dosage: OTHER
     Route: 058

REACTIONS (4)
  - Nerve injury [None]
  - Oral pain [None]
  - Temporomandibular joint syndrome [None]
  - Weight decreased [None]

NARRATIVE: CASE EVENT DATE: 20150101
